FAERS Safety Report 21363454 (Version 1)
Quarter: 2022Q3

REPORT INFORMATION
  Report Type: Spontaneous
  Country: FR (occurrence: FR)
  Receive Date: 20220922
  Receipt Date: 20220922
  Transmission Date: 20221027
  Serious: Yes (Disabling)
  Sender: FDA-Public Use
  Company Number: FR-CELLTRION INC.-2016FR011445

PATIENT

DRUGS (9)
  1. INFLECTRA [Suspect]
     Active Substance: INFLIXIMAB-DYYB
     Indication: Rheumatoid arthritis
     Dosage: 300 MG, FREQ: TOTAL
     Route: 041
     Dates: start: 20151216, end: 20151216
  2. INFLECTRA [Suspect]
     Active Substance: INFLIXIMAB-DYYB
     Dosage: 300 MG, FREQ: TOTAL
     Route: 041
     Dates: start: 20160111, end: 20160111
  3. ACLASTA [Concomitant]
     Active Substance: ZOLEDRONIC ACID
     Dosage: FREQ:1 YEAR; INTERVAL:1
     Route: 041
     Dates: start: 20120101
  4. APRANAX                            /00256201/ [Concomitant]
     Dosage: 550 MG, 1 TO 2 TABLETS PER DAY
  5. ARAVA [Concomitant]
     Active Substance: LEFLUNOMIDE
     Dosage: 20 MG, FREQ: 1 DAY; INTERVAL: 1
  6. ARAVA [Concomitant]
     Active Substance: LEFLUNOMIDE
     Dosage: 10 MG, FREQ: 1 DAY; INTERVAL: 1
     Dates: start: 20090601
  7. DOLIPRANE [Concomitant]
     Active Substance: ACETAMINOPHEN
     Dosage: UNK
  8. INEXIUM                            /01479302/ [Concomitant]
     Dosage: 20 MG, 1 TABLET ON EVENING IF APRANAX WAS TAKEN
  9. CHOLECALCIFEROL [Concomitant]
     Active Substance: CHOLECALCIFEROL
     Dosage: 1 DF, FREQ: 1 MONTH; INTERVAL:2

REACTIONS (7)
  - Asthenia [Not Recovered/Not Resolved]
  - Arthralgia [Not Recovered/Not Resolved]
  - Drug ineffective [Recovered/Resolved]
  - Arthralgia [Not Recovered/Not Resolved]
  - Drug ineffective [Recovered/Resolved]
  - Condition aggravated [Not Recovered/Not Resolved]
  - Hospitalisation [Recovered/Resolved]

NARRATIVE: CASE EVENT DATE: 20160101
